FAERS Safety Report 19224673 (Version 1)
Quarter: 2021Q2

REPORT INFORMATION
  Report Type: Spontaneous
  Country: US (occurrence: US)
  Receive Date: 20210505
  Receipt Date: 20210505
  Transmission Date: 20210717
  Serious: No
  Sender: FDA-Public Use
  Company Number: US-ROCHE-2718367

PATIENT
  Age: 73 Year
  Sex: Male

DRUGS (4)
  1. ESBRIET [Suspect]
     Active Substance: PIRFENIDONE
     Indication: IDIOPATHIC PULMONARY FIBROSIS
     Route: 048
     Dates: start: 2020, end: 2020
  2. ESBRIET [Suspect]
     Active Substance: PIRFENIDONE
     Dosage: ONE TABLET PER DOSE ;ONGOING: NO
     Route: 048
     Dates: start: 2020, end: 2020
  3. ESBRIET [Suspect]
     Active Substance: PIRFENIDONE
     Dosage: THREE 267 MG TABLETS PER DOSE ;ONGOING: NO
     Route: 048
     Dates: start: 2020, end: 2020
  4. ESBRIET [Suspect]
     Active Substance: PIRFENIDONE
     Dosage: TWO 267 MG TABLETS PER DOSE ;ONGOING: NO
     Route: 048
     Dates: start: 2020, end: 2020

REACTIONS (1)
  - Rash [Unknown]

NARRATIVE: CASE EVENT DATE: 2020
